FAERS Safety Report 5306990-7 (Version None)
Quarter: 2007Q2

REPORT INFORMATION
  Report Type: 
  Country: None (occurrence: None)
  Receive Date: 20070418
  Receipt Date: 20070410
  Transmission Date: 20071010
  Serious: Yes (Other)
  Sender: FDA-Public Use
  Company Number: TUK2006A00042

PATIENT
  Age: 33 Year
  Sex: Female

DRUGS (4)
  1. ACTOS [Suspect]
     Dosage: 45 MG
  2. METFORMIN HCL [Suspect]
     Indication: DIABETES MELLITUS
     Dosage: 2 GM, ORAL
     Route: 048
  3. PREDNISOLONE [Suspect]
     Indication: UVEITIS
  4. INSULIN (INSULIN) [Concomitant]

REACTIONS (4)
  - DIABETES MELLITUS INADEQUATE CONTROL [None]
  - MACULAR OEDEMA [None]
  - RETINAL ANEURYSM [None]
  - RETINAL EXUDATES [None]
